FAERS Safety Report 24445582 (Version 1)
Quarter: 2024Q4

REPORT INFORMATION
  Report Type: Report from Study
  Country: US (occurrence: US)
  Receive Date: 20241016
  Receipt Date: 20241016
  Transmission Date: 20250115
  Serious: Yes (Hospitalization, Other)
  Sender: GILEAD
  Company Number: US-GILEAD-2024-0690639

PATIENT
  Age: 24 Year
  Sex: Female

DRUGS (3)
  1. AZTREONAM LYSINE [Suspect]
     Active Substance: AZTREONAM LYSINE
     Indication: Cystic fibrosis
     Dosage: 75 MG, INHALE 1 ML SOLUTION BY NEBULIZER AS DIRECTED 3 TIMES DAILY. ALTERNATE 28 DAYS ON/28 DAYS OFF
     Route: 055
     Dates: start: 20231014
  2. REMERON [Concomitant]
     Active Substance: MIRTAZAPINE
  3. AMLODIPINE [Concomitant]
     Active Substance: AMLODIPINE BESYLATE

REACTIONS (12)
  - Respiratory symptom [Unknown]
  - Exercise tolerance decreased [Unknown]
  - Nasal inflammation [Unknown]
  - Wheezing [Unknown]
  - Sleep disorder [Unknown]
  - General physical health deterioration [Unknown]
  - Nasal congestion [Unknown]
  - Fatigue [Unknown]
  - Cystic fibrosis [Unknown]
  - Cough [Unknown]
  - Dyspnoea [Unknown]
  - Maternal exposure during pregnancy [Unknown]

NARRATIVE: CASE EVENT DATE: 20240926
